FAERS Safety Report 12884728 (Version 2)
Quarter: 2016Q4

REPORT INFORMATION
  Report Type: Spontaneous
  Country: CH (occurrence: CH)
  Receive Date: 20161026
  Receipt Date: 20161028
  Transmission Date: 20170207
  Serious: Yes (Death)
  Sender: FDA-Public Use
  Company Number: CH-PFIZER INC-2016488173

PATIENT
  Age: 45 Year
  Sex: Female
  Weight: 106 kg

DRUGS (5)
  1. NOVALGIN [Concomitant]
     Active Substance: METAMIZOLE SODIUM
     Indication: PAIN
     Dosage: MAXIMUM DOSAGE 2-2-2-2 PER DAY AT PAIN
     Route: 048
     Dates: start: 20150924
  2. REDOXON /00008001/ [Concomitant]
     Dosage: 1 DF, 1X/DAY (1-0-0-0)
     Route: 048
     Dates: start: 20150923
  3. PANTOZOL [Concomitant]
     Active Substance: PANTOPRAZOLE SODIUM
     Dosage: 40 MG, 1X/DAY (1-0-0-0)
     Route: 048
     Dates: start: 20150923
  4. CELEBREX [Suspect]
     Active Substance: CELECOXIB
     Indication: POSTOPERATIVE ANALGESIA
     Dosage: 200 MG, 2X/DAY (1-0-1-0)
     Route: 048
     Dates: start: 20150924
  5. FEMADIOL MEPHA [Suspect]
     Active Substance: ETHINYL ESTRADIOL\GESTODENE
     Indication: ORAL CONTRACEPTION
     Dosage: 1 DF, 1X/DAY
     Route: 048

REACTIONS (3)
  - Pulmonary embolism [Fatal]
  - Drug prescribing error [Fatal]
  - Product use issue [Unknown]

NARRATIVE: CASE EVENT DATE: 2015
